FAERS Safety Report 7762319-6 (Version None)
Quarter: 2011Q3

REPORT INFORMATION
  Report Type: 
  Country: None (occurrence: None)
  Receive Date: 20110920
  Receipt Date: 20110906
  Transmission Date: 20111222
  Serious: Yes (Hospitalization)
  Sender: FDA-Public Use
  Company Number: ES-NOVOPROD-330529

PATIENT

DRUGS (14)
  1. DIOSMINA CINFA [Concomitant]
     Indication: VENOUS INSUFFICIENCY
     Dosage: 400 MG, QD
     Dates: start: 20080902
  2. INSULIN GLARGINE [Concomitant]
     Indication: DIABETES MELLITUS
     Dosage: 14 IU, QD
     Dates: start: 20110421
  3. LEVOTIROXINA [Concomitant]
     Indication: HYPOTHYROIDISM
     Dosage: 100 UG, QD
     Dates: start: 20090525
  4. AUGMENTINE                         /00756801/ [Concomitant]
     Indication: ABDOMINAL PAIN
     Dosage: 1 U, QD
     Dates: start: 20110603, end: 20110615
  5. CYANOCOBALAMIN [Concomitant]
     Indication: VITAMIN B12 DEFICIENCY
     Dosage: 2.0 UG, QD
     Dates: start: 20080903
  6. LIRAGLUTIDE FLEXPEN [Suspect]
     Dosage: 1.8 MG, QD
     Route: 058
     Dates: start: 20110324, end: 20110603
  7. CALCIUM CARBONATE [Concomitant]
     Indication: OSTEOPENIA
     Dosage: 30 G, QD
     Dates: start: 20090907
  8. GLICLAZIDA MER [Concomitant]
     Indication: DIABETES MELLITUS
     Dosage: 90 MG, QD
     Dates: start: 20100419
  9. DILTIAZEM [Concomitant]
     Indication: HYPERTENSION
     Dosage: 240 MG, QD
     Dates: start: 20080902
  10. IRBESARTAN [Concomitant]
     Indication: HYPERTENSION
     Dosage: 300 MG, QD
     Dates: start: 20080903
  11. CALCIFEDIOL [Concomitant]
     Indication: OSTEOPENIA
     Dosage: 0.2 MG, QD
     Dates: start: 20101213
  12. PRAVASTATINA [Concomitant]
     Indication: DYSLIPIDAEMIA
     Dosage: 40 MG, QD
     Dates: start: 20080828
  13. FOLIC ACID [Concomitant]
     Indication: ANAEMIA
     Dosage: 400 UG, QD
     Dates: start: 20080903
  14. TORASEMIDA ALTER [Concomitant]
     Indication: HYPERTENSION
     Dosage: 5 MG, QD
     Dates: start: 20080903

REACTIONS (2)
  - DUODENAL ULCER HAEMORRHAGE [None]
  - DUODENAL ULCER [None]
